FAERS Safety Report 7564286-7 (Version None)
Quarter: 2011Q2

REPORT INFORMATION
  Report Type: 
  Country: None (occurrence: None)
  Receive Date: 20110622
  Receipt Date: 20110609
  Transmission Date: 20111010
  Serious: Yes (Other)
  Sender: FDA-Public Use
  Company Number: PHHY2010JP22331

PATIENT
  Sex: Male
  Weight: 46 kg

DRUGS (11)
  1. BISOPROLOL FUMARATE [Concomitant]
     Indication: HYPERTENSION
     Dosage: 1.25 MG, UNK
     Route: 048
     Dates: start: 20081112
  2. WARFARIN SODIUM [Concomitant]
     Dosage: 1.5 MG, UNK
     Route: 048
     Dates: start: 20090218
  3. VALSARTAN [Suspect]
     Indication: HYPERTENSION
     Dosage: 80 MG, QD
     Route: 048
     Dates: start: 20090121
  4. CALBLOCK [Concomitant]
     Indication: HYPERTENSION
     Dosage: 16 MG, UNK
     Route: 048
     Dates: start: 20081126, end: 20090121
  5. MUCOSTA [Concomitant]
     Dosage: 200 MG, UNK
     Route: 048
     Dates: start: 20070905
  6. PREDNISOLONE [Concomitant]
     Dosage: 2.5 MG, UNK
     Route: 048
     Dates: start: 20080702, end: 20090120
  7. RISEDRONATE SODIUM [Concomitant]
     Dosage: 2.5 MG, UNK
     Route: 048
     Dates: start: 20070905
  8. BISOPROLOL FUMARATE [Concomitant]
     Dosage: 1.25 MG, UNK
     Route: 048
  9. METHYCOBAL [Concomitant]
     Dosage: 1 MG, UNK
     Route: 048
     Dates: start: 20080116
  10. LANIRAPID [Concomitant]
     Dosage: 0.05 MG, UNK
     Route: 048
     Dates: start: 20090218, end: 20090309
  11. BISOPROLOL FUMARATE [Concomitant]
     Dosage: 1.25 MG, UNK
     Route: 048

REACTIONS (2)
  - BLOOD PRESSURE DIASTOLIC DECREASED [None]
  - ATRIAL FIBRILLATION [None]
